FAERS Safety Report 13822573 (Version 1)
Quarter: 2017Q3

REPORT INFORMATION
  Report Type: Spontaneous
  Country: JP (occurrence: JP)
  Receive Date: 20170801
  Receipt Date: 20170801
  Transmission Date: 20171127
  Serious: Yes (Other)
  Sender: FDA-Public Use
  Company Number: JP-ELI_LILLY_AND_COMPANY-JP201706010096

PATIENT
  Age: 75 Year
  Sex: Male

DRUGS (4)
  1. FLUOROURACIL. [Concomitant]
     Active Substance: FLUOROURACIL
     Indication: COLON CANCER
     Dosage: 3500 MG, CYCLICAL
     Route: 041
     Dates: start: 20170606
  2. CYRAMZA [Suspect]
     Active Substance: RAMUCIRUMAB
     Indication: COLON CANCER
     Dosage: 500 MG, CYCLICAL
     Route: 041
     Dates: start: 20170606, end: 20170704
  3. LEVOFOLINATE                       /06682103/ [Concomitant]
     Active Substance: LEVOLEUCOVORIN CALCIUM
     Indication: COLON CANCER
     Dosage: 325 MG, CYCLICAL
     Route: 041
     Dates: start: 20170606
  4. IRINOTECAN [Concomitant]
     Active Substance: IRINOTECAN
     Indication: COLON CANCER
     Dosage: 260 MG, CYCLICAL
     Route: 041
     Dates: start: 20170606

REACTIONS (3)
  - Dysarthria [Recovering/Resolving]
  - Asthenia [Recovered/Resolved with Sequelae]
  - Dizziness [Recovered/Resolved with Sequelae]

NARRATIVE: CASE EVENT DATE: 20170622
